FAERS Safety Report 24604415 (Version 1)
Quarter: 2024Q4

REPORT INFORMATION
  Report Type: Spontaneous
  Country: JP (occurrence: JP)
  Receive Date: 20241111
  Receipt Date: 20241111
  Transmission Date: 20250115
  Serious: Yes (Hospitalization, Other)
  Sender: PFIZER
  Company Number: JP-PFIZER INC-PV202400144107

PATIENT
  Age: 7 Decade
  Sex: Female

DRUGS (1)
  1. METHOTREXATE SODIUM [Suspect]
     Active Substance: METHOTREXATE SODIUM
     Indication: Rheumatoid arthritis

REACTIONS (4)
  - Toxicity to various agents [Recovering/Resolving]
  - Pancytopenia [Recovering/Resolving]
  - Duodenal ulcer haemorrhage [Recovering/Resolving]
  - Mucosal disorder [Recovering/Resolving]
